FAERS Safety Report 10167465 (Version 5)
Quarter: 2015Q2

REPORT INFORMATION
  Report Type: Spontaneous
  Country: US (occurrence: US)
  Receive Date: 20140512
  Receipt Date: 20150515
  Transmission Date: 20150821
  Serious: Yes (Hospitalization, Other)
  Sender: FDA-Public Use
  Company Number: US-MERCK-1405USA002450

PATIENT
  Sex: Female
  Weight: 51.7 kg

DRUGS (6)
  1. FOSAMAX [Suspect]
     Active Substance: ALENDRONATE SODIUM
     Indication: OSTEOPOROSIS
     Dosage: 10 MG, QD
     Route: 048
     Dates: start: 1995
  2. VITAMINS (UNSPECIFIED) [Concomitant]
     Active Substance: VITAMINS
     Dosage: UNK
     Dates: start: 2000
  3. ASCORBIC ACID. [Concomitant]
     Active Substance: ASCORBIC ACID
     Dosage: UNK
     Dates: start: 2000
  4. FOSAMAX [Suspect]
     Active Substance: ALENDRONATE SODIUM
     Dosage: 70 MG, QW
     Route: 048
     Dates: start: 200201, end: 200805
  5. ALENDRONATE SODIUM. [Suspect]
     Active Substance: ALENDRONATE SODIUM
     Indication: OSTEOPOROSIS
     Dosage: 70 MG, UNK
     Route: 048
     Dates: start: 20080509, end: 201201
  6. VITAMIN D [Concomitant]
     Active Substance: CHOLECALCIFEROL
     Dosage: UNK
     Dates: start: 2000

REACTIONS (21)
  - Inguinal hernia repair [Unknown]
  - Arthralgia [Unknown]
  - Osteoarthritis [Unknown]
  - Femur fracture [Unknown]
  - Migraine [Unknown]
  - Depression [Unknown]
  - Glaucoma [Unknown]
  - Impaired healing [Unknown]
  - Haematoma [Unknown]
  - Femur fracture [Unknown]
  - Open reduction of fracture [Unknown]
  - Adverse event [Unknown]
  - Insomnia [Unknown]
  - Anxiety disorder [Unknown]
  - Keratoconus [Unknown]
  - Corneal transplant [Unknown]
  - Nausea [Unknown]
  - Intramedullary rod insertion [Unknown]
  - Femoral neck fracture [Unknown]
  - Haemorrhagic anaemia [Unknown]
  - Osteopenia [Unknown]

NARRATIVE: CASE EVENT DATE: 201111
